FAERS Safety Report 11269947 (Version 2)
Quarter: 2015Q3

REPORT INFORMATION
  Report Type: Spontaneous
  Country: SE (occurrence: SE)
  Receive Date: 20150714
  Receipt Date: 20150714
  Transmission Date: 20151125
  Serious: Yes (Death)
  Sender: FDA-Public Use
  Company Number: SE-TEVA-575824ISR

PATIENT
  Age: 80 Year
  Sex: Female

DRUGS (2)
  1. CITALOPRAM [Suspect]
     Active Substance: CITALOPRAM HYDROBROMIDE
     Route: 048
  2. NAPROXEN 250 MILLIGRAM PER ORAL [Suspect]
     Active Substance: NAPROXEN
     Route: 048

REACTIONS (1)
  - Gastric ulcer perforation [Fatal]
